FAERS Safety Report 24894677 (Version 1)
Quarter: 2025Q1

REPORT INFORMATION
  Report Type: Spontaneous
  Country: US (occurrence: None)
  Receive Date: 20250127
  Receipt Date: 20250127
  Transmission Date: 20250409
  Serious: Yes (Disabling, Other)
  Sender: FDA-CTU
  Company Number: None

PATIENT
  Age: 21 Year
  Sex: Male
  Weight: 69.75 kg

DRUGS (3)
  1. ALUMINUM CHLOROHYDRATE [Suspect]
     Active Substance: ALUMINUM CHLOROHYDRATE
     Dates: start: 20250113, end: 20250115
  2. CREATINE [Concomitant]
     Active Substance: CREATINE
  3. WHEY [Concomitant]
     Active Substance: WHEY

REACTIONS (2)
  - Skin disorder [None]
  - Burns third degree [None]

NARRATIVE: CASE EVENT DATE: 20250120
